FAERS Safety Report 13590860 (Version 1)
Quarter: 2017Q2

REPORT INFORMATION
  Report Type: Report from Study
  Country: US (occurrence: US)
  Receive Date: 20170530
  Receipt Date: 20170530
  Transmission Date: 20170830
  Serious: Yes (Other)
  Sender: FDA-Public Use
  Company Number: US-SUN PHARMACEUTICAL INDUSTRIES LTD-2017US-141704

PATIENT

DRUGS (4)
  1. RIFAPENTINE [Interacting]
     Active Substance: RIFAPENTINE
     Indication: LATENT TUBERCULOSIS
     Route: 065
  2. METOPROLOL. [Interacting]
     Active Substance: METOPROLOL
     Indication: HYPERTENSION
     Dosage: 25 MG, BID
     Route: 065
  3. ISONIAZID. [Suspect]
     Active Substance: ISONIAZID
     Indication: LATENT TUBERCULOSIS
     Route: 065
  4. PYRIDOXINE [Suspect]
     Active Substance: PYRIDOXINE
     Indication: LATENT TUBERCULOSIS
     Dosage: UNK, DAILY
     Route: 065

REACTIONS (2)
  - Hypertension [Unknown]
  - Drug interaction [Unknown]
